FAERS Safety Report 10064634 (Version 1)
Quarter: 2014Q2

REPORT INFORMATION
  Report Type: Spontaneous
  Country: US (occurrence: None)
  Receive Date: 20140407
  Receipt Date: 20140407
  Transmission Date: 20141212
  Serious: Yes (Other)
  Sender: FDA-Public Use
  Company Number: None

PATIENT
  Age: 27 Year
  Sex: Female
  Weight: 70.31 kg

DRUGS (3)
  1. FLUTICASONE PROPIONATE [Suspect]
     Indication: NASAL INFLAMMATION
     Dosage: ONE SPRAY IN EACH NOSTRIL
     Route: 055
     Dates: start: 20140320, end: 20140401
  2. FLUTICASONE PROPIONATE [Suspect]
     Indication: MULTIPLE ALLERGIES
     Dosage: ONE SPRAY IN EACH NOSTRIL
     Route: 055
     Dates: start: 20140320, end: 20140401
  3. FLUTICASONE PROPIONATE [Suspect]
     Indication: EAR INFECTION
     Dosage: ONE SPRAY IN EACH NOSTRIL
     Route: 055
     Dates: start: 20140320, end: 20140401

REACTIONS (1)
  - Menstruation delayed [None]
